FAERS Safety Report 18483321 (Version 1)
Quarter: 2020Q4

REPORT INFORMATION
  Report Type: Spontaneous
  Country: US (occurrence: US)
  Receive Date: 20201109
  Receipt Date: 20201109
  Transmission Date: 20210114
  Serious: No
  Sender: FDA-Public Use
  Company Number: US-ROCHE-2566409

PATIENT
  Age: 46 Year
  Sex: Female

DRUGS (2)
  1. PULMOZYME [Suspect]
     Active Substance: DORNASE ALFA
     Indication: PRODUCT USED FOR UNKNOWN INDICATION
     Dosage: 1 MG/ML AMPULE REFRIGERATED, DAILY
     Route: 055
  2. MIRALAX [Concomitant]
     Active Substance: POLYETHYLENE GLYCOL 3350

REACTIONS (5)
  - Abdominal distension [Unknown]
  - Hypoglycaemia [Unknown]
  - Headache [Unknown]
  - Constipation [Unknown]
  - Dry eye [Unknown]

NARRATIVE: CASE EVENT DATE: 20200309
